FAERS Safety Report 15331966 (Version 1)
Quarter: 2018Q3

REPORT INFORMATION
  Report Type: Report from Study
  Country: IN (occurrence: IN)
  Receive Date: 20180829
  Receipt Date: 20180829
  Transmission Date: 20181010
  Serious: Yes (Other)
  Sender: FDA-Public Use
  Company Number: PHHY2018IN019533

PATIENT
  Age: 42 Year
  Sex: Male

DRUGS (1)
  1. VYMADA [Suspect]
     Active Substance: SACUBITRIL\VALSARTAN
     Indication: CARDIAC FAILURE CONGESTIVE
     Dosage: 50 MG, UNK
     Route: 048
     Dates: start: 20180122

REACTIONS (7)
  - Renal disorder [Unknown]
  - Drug prescribing error [Not Recovered/Not Resolved]
  - Blood cholesterol abnormal [Unknown]
  - Diabetes mellitus [Unknown]
  - Wrong technique in product usage process [Not Recovered/Not Resolved]
  - Liver function test abnormal [Unknown]
  - Prescribed underdose [Not Recovered/Not Resolved]
